FAERS Safety Report 23400378 (Version 1)
Quarter: 2024Q1

REPORT INFORMATION
  Report Type: Report from Study
  Country: US (occurrence: US)
  Receive Date: 20240115
  Receipt Date: 20240115
  Transmission Date: 20240409
  Serious: Yes (Other)
  Sender: FDA-Public Use
  Company Number: US-ABBVIE-5585575

PATIENT
  Sex: Female

DRUGS (1)
  1. RINVOQ [Suspect]
     Active Substance: UPADACITINIB
     Indication: Rheumatoid arthritis
     Route: 048
     Dates: start: 20211201

REACTIONS (10)
  - Ankle operation [Recovering/Resolving]
  - Knee deformity [Unknown]
  - Hand deformity [Unknown]
  - Limb injury [Unknown]
  - Abnormal weight gain [Recovered/Resolved]
  - Rib fracture [Recovered/Resolved]
  - Colitis [Recovering/Resolving]
  - Nephrolithiasis [Recovering/Resolving]
  - Back disorder [Unknown]
  - Nausea [Recovering/Resolving]

NARRATIVE: CASE EVENT DATE: 20230101
